FAERS Safety Report 21694321 (Version 1)
Quarter: 2022Q4

REPORT INFORMATION
  Report Type: Report from Study
  Country: CN (occurrence: CN)
  Receive Date: 20221207
  Receipt Date: 20221207
  Transmission Date: 20230113
  Serious: Yes (Other)
  Sender: FDA-Public Use
  Company Number: CN-TAKEDA-2022TUS059487

PATIENT
  Age: 60 Year
  Sex: Female
  Weight: 60 kg

DRUGS (31)
  1. IXAZOMIB [Suspect]
     Active Substance: IXAZOMIB
     Indication: Plasma cell myeloma
     Dosage: 4 MILLIGRAM
     Route: 048
     Dates: start: 20210831
  2. DEXAMETHASONE [Concomitant]
     Active Substance: DEXAMETHASONE
     Indication: Plasma cell myeloma
     Dosage: 20 MILLIGRAM, QD
     Route: 042
     Dates: start: 20210810, end: 20210811
  3. LANSOPRAZOLE [Concomitant]
     Active Substance: LANSOPRAZOLE
     Indication: Prophylaxis
     Dosage: 30 MILLIGRAM, QD
     Route: 042
     Dates: start: 20210810, end: 20210810
  4. LANSOPRAZOLE [Concomitant]
     Active Substance: LANSOPRAZOLE
     Dosage: 30 MILLIGRAM
     Route: 041
     Dates: start: 20211019, end: 20211108
  5. SODIUM BICARBONATE [Concomitant]
     Active Substance: SODIUM BICARBONATE
     Indication: Prophylaxis
     Dosage: 2 GRAM, QD
     Route: 042
     Dates: start: 20210810, end: 20210810
  6. SODIUM BICARBONATE [Concomitant]
     Active Substance: SODIUM BICARBONATE
     Dosage: 30 MILLILITER, BID
     Route: 041
     Dates: start: 20211019, end: 20211108
  7. DEXRAZOXANE [Concomitant]
     Active Substance: DEXRAZOXANE
     Indication: Prophylaxis
     Dosage: 0.6 GRAM, QD
     Route: 042
     Dates: start: 20210810, end: 20210810
  8. EPIRUBICIN HYDROCHLORIDE [Concomitant]
     Active Substance: EPIRUBICIN HYDROCHLORIDE
     Indication: Plasma cell myeloma
     Dosage: 95 NANOGRAM, QD
     Route: 042
     Dates: start: 20210810, end: 20210810
  9. DIISOPROPYLAMINE DICHLORACETATE [Concomitant]
     Indication: Prophylaxis
     Dosage: 40 NANOGRAM, QD
     Route: 042
     Dates: start: 20210810, end: 20210810
  10. ONDANSETRON HYDROCHLORIDE [Concomitant]
     Active Substance: ONDANSETRON HYDROCHLORIDE
     Indication: Vomiting
     Dosage: 8 MILLIGRAM, QD
     Route: 042
     Dates: start: 20210810, end: 20210810
  11. BORTEZOMIB [Concomitant]
     Active Substance: BORTEZOMIB
     Indication: Plasma cell myeloma
     Dosage: 2.2 MILLIGRAM, QD
     Route: 042
     Dates: start: 20210811, end: 20210811
  12. METHYLCOBALAMIN [Concomitant]
     Active Substance: METHYLCOBALAMIN
     Indication: Prophylaxis
     Dosage: 0.05 MILLIGRAM, TID
     Route: 048
     Dates: start: 20210811, end: 20210811
  13. METHYLCOBALAMIN [Concomitant]
     Active Substance: METHYLCOBALAMIN
     Dosage: 0.5 MILLIGRAM, BID
     Route: 048
     Dates: start: 20210902, end: 20210923
  14. MAGNESIUM ALUMINIUM SILICAT COLLOID [Concomitant]
     Indication: Prophylaxis
     Dosage: 0.5 GRAM, TID
     Route: 048
     Dates: start: 20210811, end: 20210811
  15. MAGNESIUM ALUMINIUM SILICAT COLLOID [Concomitant]
     Dosage: 0.5 GRAM, TID
     Route: 048
     Dates: start: 20210902, end: 20210923
  16. VITAMIN D [Concomitant]
     Active Substance: VITAMIN D NOS
     Indication: Mineral supplementation
     Dosage: 600 MILLIGRAM, QD
     Route: 048
     Dates: start: 20210811, end: 20210811
  17. VITAMIN D [Concomitant]
     Active Substance: VITAMIN D NOS
     Dosage: 600 MILLIGRAM, QD
     Route: 048
     Dates: start: 20210902, end: 20210923
  18. ACYCLOVIR [Concomitant]
     Active Substance: ACYCLOVIR
     Indication: Prophylaxis
     Dosage: 0.4 GRAM, QD
     Route: 048
     Dates: start: 20210811, end: 20210811
  19. ACYCLOVIR [Concomitant]
     Active Substance: ACYCLOVIR
     Dosage: 0.4 GRAM, QD
     Route: 048
     Dates: start: 20210902, end: 20210923
  20. ACYCLOVIR [Concomitant]
     Active Substance: ACYCLOVIR
     Dosage: 0.4 GRAM, BID
     Route: 048
     Dates: start: 20211019, end: 20211101
  21. GLUTATHIONE [Concomitant]
     Active Substance: GLUTATHIONE
     Indication: Prophylaxis
     Dosage: 0.4 GRAM, QD
     Route: 048
     Dates: start: 20210811, end: 20210811
  22. GLUTATHIONE [Concomitant]
     Active Substance: GLUTATHIONE
     Dosage: 0.4 GRAM, QD
     Route: 048
     Dates: start: 20210902, end: 20210923
  23. POTASSIUM CITRATE [Concomitant]
     Active Substance: POTASSIUM CITRATE
     Indication: Mineral supplementation
     Dosage: 1.45 GRAM
     Route: 048
     Dates: start: 20210915
  24. URSODIOL [Concomitant]
     Active Substance: URSODIOL
     Indication: Gastrooesophageal reflux prophylaxis
     Dosage: 250 MILLIGRAM, BID
     Route: 048
     Dates: start: 20211019, end: 20211108
  25. POTASSIUM CHLORIDE [Concomitant]
     Active Substance: POTASSIUM CHLORIDE
     Indication: Prophylaxis
     Dosage: 1 GRAM, QD
     Route: 041
     Dates: start: 20211019, end: 20211108
  26. L-carnitin [Concomitant]
     Indication: Prophylaxis
     Dosage: 2 GRAM, QD
     Route: 041
     Dates: start: 20211019, end: 20211101
  27. ALLOPURINOL [Concomitant]
     Active Substance: ALLOPURINOL
     Indication: Hyperuricaemia
     Dosage: 0.25 GRAM, QD
     Route: 041
     Dates: start: 20211019, end: 20211024
  28. GLUTATHIONE [Concomitant]
     Active Substance: GLUTATHIONE
     Indication: Prophylaxis
     Dosage: 1.2 GRAM, QD
     Route: 041
     Dates: start: 20211019, end: 20211024
  29. GANCICLOVIR [Concomitant]
     Active Substance: GANCICLOVIR
     Indication: Antiviral prophylaxis
     Dosage: 0.305 GRAM, QD
     Route: 048
     Dates: start: 20211019, end: 20211024
  30. LIDOCAINE HYDROCHLORIDE [Concomitant]
     Active Substance: LIDOCAINE HYDROCHLORIDE
     Indication: Anaesthesia
     Dosage: 0.1 GRAM, QD
     Route: 041
     Dates: start: 20211019, end: 20211019
  31. HEPARIN SODIUM [Concomitant]
     Active Substance: HEPARIN SODIUM
     Indication: Anticoagulant therapy
     Dosage: UNK, QD
     Route: 041
     Dates: start: 20211019, end: 20211019

REACTIONS (24)
  - Lacunar infarction [Not Recovered/Not Resolved]
  - Pneumonitis [Not Recovered/Not Resolved]
  - Eczema [Unknown]
  - Alanine aminotransferase increased [Recovered/Resolved]
  - Proctitis [Not Recovered/Not Resolved]
  - Haemorrhoids [Not Recovered/Not Resolved]
  - Hyperuricaemia [Recovered/Resolved]
  - Hypertriglyceridaemia [Not Recovered/Not Resolved]
  - Lymphocyte count decreased [Recovered/Resolved]
  - White blood cell count decreased [Recovered/Resolved]
  - Neutrophil count decreased [Recovered/Resolved]
  - Lactose intolerance [Recovered/Resolved]
  - Hyponatraemia [Recovered/Resolved]
  - Emphysema [Not Recovered/Not Resolved]
  - Bronchitis [Not Recovered/Not Resolved]
  - Enteritis [Recovered/Resolved]
  - Uterine leiomyoma [Not Recovered/Not Resolved]
  - Anaemia [Recovered/Resolved]
  - Blood bilirubin increased [Recovered/Resolved]
  - Hypocalcaemia [Recovered/Resolved]
  - Aspartate aminotransferase increased [Recovered/Resolved]
  - Platelet count decreased [Recovered/Resolved]
  - Nausea [Recovered/Resolved]
  - Off label use [Unknown]

NARRATIVE: CASE EVENT DATE: 20210831
